FAERS Safety Report 22043288 (Version 1)
Quarter: 2023Q1

REPORT INFORMATION
  Report Type: Other
  Country: None (occurrence: CH)
  Receive Date: 20230228
  Receipt Date: 20230228
  Transmission Date: 20230417
  Serious: Yes (Hospitalization, Other)
  Sender: FDA-Public Use
  Company Number: CH-Guardian Drug Company-2138528

PATIENT
  Age: 42 Year
  Sex: Female

DRUGS (3)
  1. CHILDRENS IBUPROFEN [Suspect]
     Active Substance: IBUPROFEN
     Indication: Arthritis
     Route: 065
  2. ADALIMUMAB [Suspect]
     Active Substance: ADALIMUMAB
     Route: 065
  3. METHOTREXATE [Suspect]
     Active Substance: METHOTREXATE
     Route: 065

REACTIONS (1)
  - Crystal nephropathy [Recovered/Resolved]
